FAERS Safety Report 9380673 (Version 1)
Quarter: 2013Q3

REPORT INFORMATION
  Report Type: Report from Study
  Country: CA (occurrence: CA)
  Receive Date: 20130702
  Receipt Date: 20130702
  Transmission Date: 20140515
  Serious: Yes (Other)
  Sender: FDA-Public Use
  Company Number: CA-JNJFOC-20130603400

PATIENT
  Sex: Female
  Weight: 69.85 kg

DRUGS (15)
  1. STELARA [Suspect]
     Indication: PSORIASIS
     Route: 058
     Dates: start: 20120118
  2. LASIX [Concomitant]
     Route: 048
  3. NITROGLYCERIN [Concomitant]
     Route: 060
  4. PLAVIX [Concomitant]
     Route: 048
  5. ZAROXOLYN [Concomitant]
     Route: 048
  6. ALDACTONE [Concomitant]
     Route: 048
  7. ASPIRIN [Concomitant]
     Route: 048
  8. AMITRIPTYLINE [Concomitant]
     Route: 048
  9. CARBAMAZEPINE [Concomitant]
     Route: 048
  10. CLONAZEPAM [Concomitant]
     Route: 048
  11. METOPROLOL [Concomitant]
     Route: 048
  12. PRAVASTATIN [Concomitant]
     Route: 048
  13. CELEXA [Concomitant]
     Route: 048
  14. LOSEC [Concomitant]
     Route: 048
  15. NITRO [Concomitant]
     Route: 061

REACTIONS (1)
  - Skin ulcer [Unknown]
